FAERS Safety Report 10750876 (Version 1)
Quarter: 2015Q1

REPORT INFORMATION
  Report Type: Report from Study
  Country: CA (occurrence: CA)
  Receive Date: 20150130
  Receipt Date: 20150130
  Transmission Date: 20150721
  Serious: Yes (Hospitalization)
  Sender: FDA-Public Use
  Company Number: CA-JNJFOC-20150116475

PATIENT
  Age: 49 Year
  Sex: Male
  Weight: 87.09 kg

DRUGS (1)
  1. REMICADE [Suspect]
     Active Substance: INFLIXIMAB
     Indication: CROHN^S DISEASE
     Route: 042
     Dates: end: 201408

REACTIONS (2)
  - Internal haemorrhage [Unknown]
  - Intestinal resection [Unknown]

NARRATIVE: CASE EVENT DATE: 2014
